FAERS Safety Report 24868009 (Version 1)
Quarter: 2025Q1

REPORT INFORMATION
  Report Type: Spontaneous
  Country: CN (occurrence: CN)
  Receive Date: 20250121
  Receipt Date: 20250121
  Transmission Date: 20250408
  Serious: Yes (Hospitalization)
  Sender: PFIZER
  Company Number: CN-PFIZER INC-PV202500006554

PATIENT
  Age: 55 Year
  Sex: Male
  Weight: 55 kg

DRUGS (7)
  1. EPIRUBICIN HYDROCHLORIDE [Suspect]
     Active Substance: EPIRUBICIN HYDROCHLORIDE
     Indication: Chemotherapy
     Dosage: 100 MG, 1X/DAY
     Route: 041
     Dates: start: 20241125, end: 20241125
  2. RITUXIMAB [Suspect]
     Active Substance: RITUXIMAB
     Indication: Diffuse large B-cell lymphoma
     Dosage: 0.5 G, 1X/DAY
     Route: 041
     Dates: start: 20241124, end: 20241124
  3. RITUXIMAB [Suspect]
     Active Substance: RITUXIMAB
     Dosage: 0.1 G, 1X/DAY
     Route: 041
     Dates: start: 20241124, end: 20241124
  4. RITUXIMAB [Suspect]
     Active Substance: RITUXIMAB
     Dosage: 0.06 G, 1X/DAY
     Route: 041
     Dates: start: 20241124, end: 20241124
  5. VINCRISTINE SULFATE [Suspect]
     Active Substance: VINCRISTINE SULFATE
     Indication: Diffuse large B-cell lymphoma
     Dosage: 2 MG, 1X/DAY
     Route: 042
     Dates: start: 20241125, end: 20241125
  6. CYCLOPHOSPHAMIDE [Suspect]
     Active Substance: CYCLOPHOSPHAMIDE
     Indication: Diffuse large B-cell lymphoma
     Dosage: 0.2 G, 1X/DAY
     Route: 041
     Dates: start: 20241122, end: 20241124
  7. CYCLOPHOSPHAMIDE [Suspect]
     Active Substance: CYCLOPHOSPHAMIDE
     Dosage: 0.72 G, 1X/DAY
     Route: 041
     Dates: start: 20241125, end: 20241125

REACTIONS (4)
  - Pyrexia [Unknown]
  - Neutrophil count decreased [Unknown]
  - White blood cell count decreased [Unknown]
  - Pneumonia [Unknown]

NARRATIVE: CASE EVENT DATE: 20241203
